FAERS Safety Report 17687147 (Version 2)
Quarter: 2020Q2

REPORT INFORMATION
  Report Type: Report from Study
  Country: None (occurrence: US)
  Receive Date: 20200421
  Receipt Date: 20200422
  Transmission Date: 20200714
  Serious: Yes (Hospitalization)
  Sender: FDA-Public Use
  Company Number: US-ABBVIE-20K-163-3371027-00

PATIENT
  Sex: Female

DRUGS (4)
  1. CETIRIZINE [Concomitant]
     Active Substance: CETIRIZINE HYDROCHLORIDE
     Indication: PRODUCT USED FOR UNKNOWN INDICATION
  2. HUMIRA [Suspect]
     Active Substance: ADALIMUMAB
     Indication: CROHN^S DISEASE
     Route: 058
  3. MESALAMINE. [Concomitant]
     Active Substance: MESALAMINE
     Indication: PRODUCT USED FOR UNKNOWN INDICATION
  4. PREDNISONE. [Concomitant]
     Active Substance: PREDNISONE
     Indication: PRODUCT USED FOR UNKNOWN INDICATION
     Dosage: INCREASED DOSE TO 40 MG

REACTIONS (10)
  - Mucous stools [Recovering/Resolving]
  - Nausea [Recovering/Resolving]
  - Diarrhoea haemorrhagic [Unknown]
  - Dehydration [Recovering/Resolving]
  - Device issue [Unknown]
  - Vomiting [Recovering/Resolving]
  - Blood potassium abnormal [Recovering/Resolving]
  - Viral infection [Recovering/Resolving]
  - Colitis ulcerative [Recovering/Resolving]
  - Infection [Recovering/Resolving]
